FAERS Safety Report 6696954-3 (Version None)
Quarter: 2010Q2

REPORT INFORMATION
  Report Type: 
  Country: None (occurrence: None)
  Receive Date: 20100426
  Receipt Date: 20100417
  Transmission Date: 20101027
  Serious: Yes (Other)
  Sender: FDA-Public Use
  Company Number: PHHY2010DE20039

PATIENT
  Sex: Female
  Weight: 82 kg

DRUGS (8)
  1. ICANDRA [Suspect]
     Indication: DIABETES MELLITUS
     Dosage: 1 DF, QD
     Route: 048
     Dates: start: 20100319, end: 20100322
  2. ICANDRA [Suspect]
     Route: 048
  3. METFORMIN HCL [Concomitant]
     Dosage: UNK
  4. GLIMEPIRIDE [Concomitant]
     Indication: DIABETES MELLITUS
     Dosage: 1 DF, QD
     Route: 048
     Dates: start: 20040101
  5. GLUCOBAY [Concomitant]
     Indication: DIABETES MELLITUS
     Dosage: 1 DF, QD
     Route: 048
     Dates: start: 20040101
  6. METOZOC [Concomitant]
     Indication: HYPERTENSION
     Dosage: 0.3 DF, QD
     Route: 048
     Dates: start: 20030101
  7. ARIMIDEX [Concomitant]
     Indication: BREAST CANCER
     Dosage: 1 DF, QD
     Route: 048
     Dates: start: 20080101
  8. ALENDRONIC ACID [Concomitant]
     Indication: OSTEOPOROSIS
     Dosage: 1 DF, QW
     Route: 048
     Dates: start: 20080101

REACTIONS (4)
  - DEPRESSION [None]
  - DISCOMFORT [None]
  - NAUSEA [None]
  - TACHYCARDIA [None]
